FAERS Safety Report 5419224-X (Version None)
Quarter: 2007Q3

REPORT INFORMATION
  Report Type: 
  Country: None (occurrence: None)
  Receive Date: 20070820
  Receipt Date: 20070806
  Transmission Date: 20080115
  Serious: Yes (Other)
  Sender: FDA-Public Use
  Company Number: US-JNJFOC-20070705662

PATIENT
  Sex: Female
  Weight: 85.28 kg

DRUGS (6)
  1. REMICADE [Suspect]
     Route: 042
  2. REMICADE [Suspect]
     Route: 042
  3. REMICADE [Suspect]
     Indication: RHEUMATOID ARTHRITIS
     Route: 042
  4. METHOTREXATE [Concomitant]
  5. NORCO [Concomitant]
  6. NEURONTIN [Concomitant]

REACTIONS (7)
  - ABDOMINAL TENDERNESS [None]
  - DRUG INEFFECTIVE [None]
  - HYPOAESTHESIA [None]
  - MUSCLE TWITCHING [None]
  - NERVE INJURY [None]
  - OEDEMA PERIPHERAL [None]
  - PAIN [None]
